FAERS Safety Report 6943649-4 (Version None)
Quarter: 2010Q3

REPORT INFORMATION
  Report Type: 
  Country: None (occurrence: None)
  Receive Date: 20100826
  Receipt Date: 20100823
  Transmission Date: 20110219
  Serious: Yes (Hospitalization)
  Sender: FDA-Public Use
  Company Number: PHHO2010DE12823

PATIENT
  Sex: Male

DRUGS (4)
  1. CERTICAN [Suspect]
     Indication: RENAL TRANSPLANT
     Dosage: 3 MG /DAY
     Route: 048
     Dates: start: 20100818
  2. SIMULECT [Suspect]
     Indication: RENAL TRANSPLANT
     Dosage: 20 MG
     Route: 042
     Dates: start: 20100701, end: 20100701
  3. SIMULECT [Suspect]
     Dosage: 20 MG
     Route: 042
     Dates: start: 20100705, end: 20100705
  4. SIMULECT [Suspect]
     Dosage: 20 MG
     Route: 042
     Dates: start: 20100818, end: 20100818

REACTIONS (3)
  - NAUSEA [None]
  - PYREXIA [None]
  - VOMITING [None]
